FAERS Safety Report 13688559 (Version 1)
Quarter: 2017Q2

REPORT INFORMATION
  Report Type: Spontaneous
  Country: US (occurrence: US)
  Receive Date: 20170623
  Receipt Date: 20170623
  Transmission Date: 20170830
  Serious: Yes (Other)
  Sender: FDA-Public Use
  Company Number: None

PATIENT
  Age: 53 Year
  Sex: Male
  Weight: 78.3 kg

DRUGS (3)
  1. MULTI VITAMINE [Concomitant]
  2. LIPITOR GENERIC [Concomitant]
     Active Substance: ATORVASTATIN CALCIUM
  3. FLUTICASONE PROPIONATE. [Suspect]
     Active Substance: FLUTICASONE PROPIONATE
     Indication: HYPERSENSITIVITY
     Dosage: ?          QUANTITY:2 SPRAY(S);?
     Route: 055
     Dates: start: 20170415, end: 20170430

REACTIONS (1)
  - Anosmia [None]

NARRATIVE: CASE EVENT DATE: 20170515
